FAERS Safety Report 15662082 (Version 1)
Quarter: 2018Q4

REPORT INFORMATION
  Report Type: Spontaneous
  Country: GT (occurrence: GT)
  Receive Date: 20181127
  Receipt Date: 20181127
  Transmission Date: 20190205
  Serious: Yes (Death, Other)
  Sender: FDA-Public Use
  Company Number: PHHY2018GT166482

PATIENT
  Age: 39 Year
  Sex: Female
  Weight: 50 kg

DRUGS (1)
  1. MEKINIST [Suspect]
     Active Substance: TRAMETINIB DIMETHYL SULFOXIDE
     Indication: COLON CANCER STAGE IV
     Dosage: 2 MG, QD
     Route: 048
     Dates: start: 201810

REACTIONS (4)
  - Ascites [Unknown]
  - Metastases to liver [Fatal]
  - Product use in unapproved indication [Unknown]
  - Hepatic failure [Fatal]
